FAERS Safety Report 10854798 (Version 1)
Quarter: 2015Q1

REPORT INFORMATION
  Report Type: Spontaneous
  Country: US (occurrence: None)
  Receive Date: 20150218
  Receipt Date: 20150218
  Transmission Date: 20150721
  Serious: Yes (Disabling)
  Sender: FDA-Public Use
  Company Number: None

PATIENT
  Age: 46 Year
  Sex: Female
  Weight: 63.05 kg

DRUGS (1)
  1. LEVOFLOXACIN. [Suspect]
     Active Substance: LEVOFLOXACIN
     Indication: SINUS DISORDER
     Dosage: 1 PILL, TAKEN BY MOUTH
     Route: 048
     Dates: start: 20140912, end: 20140928

REACTIONS (6)
  - Muscle spasms [None]
  - Dyskinesia [None]
  - Walking aid user [None]
  - Dehydration [None]
  - Arthropathy [None]
  - Sensory loss [None]

NARRATIVE: CASE EVENT DATE: 20140215
